FAERS Safety Report 9280041 (Version 2)
Quarter: 2013Q2

REPORT INFORMATION
  Report Type: Spontaneous
  Country: US (occurrence: US)
  Receive Date: 20130509
  Receipt Date: 20130605
  Transmission Date: 20140414
  Serious: No
  Sender: FDA-Public Use
  Company Number: US-009507513-1305USA003393

PATIENT
  Age: 39 Year
  Sex: Male

DRUGS (3)
  1. PEGINTRON [Suspect]
     Indication: HEPATITIS C
     Dosage: VIAL PEG-INTRON
     Dates: start: 20130503
  2. REBETOL [Suspect]
     Indication: HEPATITIS C
     Dosage: UNK
     Dates: start: 20130503
  3. VICTRELIS [Suspect]
     Indication: HEPATITIS C
     Dosage: UNK
     Dates: start: 20130601

REACTIONS (6)
  - Headache [Unknown]
  - Arthralgia [Unknown]
  - Influenza like illness [Unknown]
  - Skin disorder [Unknown]
  - Ear disorder [Unknown]
  - Tinnitus [Unknown]
